FAERS Safety Report 12310664 (Version 2)
Quarter: 2016Q2

REPORT INFORMATION
  Report Type: Report from Study
  Country: FR (occurrence: FR)
  Receive Date: 20160427
  Receipt Date: 20160518
  Transmission Date: 20160815
  Serious: Yes (Hospitalization, Other)
  Sender: FDA-Public Use
  Company Number: FR-CELGENEUS-FRA-2015030408

PATIENT
  Age: 77 Year
  Sex: Male
  Weight: 82 kg

DRUGS (5)
  1. OFLOXACIN. [Concomitant]
     Active Substance: OFLOXACIN
     Indication: URINARY TRACT INFECTION
     Route: 065
  2. CIPROFLOXACIN. [Concomitant]
     Active Substance: CIPROFLOXACIN
     Indication: URINARY TRACT INFECTION
     Route: 065
  3. INNOHEP [Concomitant]
     Active Substance: TINZAPARIN SODIUM
     Indication: ANTICOAGULANT THERAPY
     Route: 065
  4. DEXAMETHASONE. [Suspect]
     Active Substance: DEXAMETHASONE
     Indication: PLASMA CELL MYELOMA
     Route: 048
     Dates: start: 20140519, end: 20150126
  5. REVLIMID [Suspect]
     Active Substance: LENALIDOMIDE
     Indication: PLASMA CELL MYELOMA
     Route: 048
     Dates: start: 20140519, end: 20150223

REACTIONS (1)
  - Prostate cancer recurrent [Not Recovered/Not Resolved]

NARRATIVE: CASE EVENT DATE: 20150222
